FAERS Safety Report 7775182-4 (Version None)
Quarter: 2011Q3

REPORT INFORMATION
  Report Type: 
  Country: None (occurrence: None)
  Receive Date: 20110923
  Receipt Date: 20110921
  Transmission Date: 20111222
  Serious: Yes (Other)
  Sender: FDA-Public Use
  Company Number: PL-BRISTOL-MYERS SQUIBB COMPANY-15967110

PATIENT
  Age: 36 Year
  Sex: Male

DRUGS (1)
  1. YERVOY [Suspect]
     Route: 042

REACTIONS (6)
  - PARALYSIS [None]
  - FEBRILE NEUTROPENIA [None]
  - PERIPHERAL MOTOR NEUROPATHY [None]
  - NEUTROPENIA [None]
  - CONVULSION [None]
  - VIITH NERVE PARALYSIS [None]
